FAERS Safety Report 5602297-9 (Version None)
Quarter: 2008Q1

REPORT INFORMATION
  Report Type: 
  Country: None (occurrence: None)
  Receive Date: 20080125
  Receipt Date: 20080121
  Transmission Date: 20080703
  Serious: Yes (Hospitalization, Other)
  Sender: FDA-Public Use
  Company Number: AU-AVENTIS-200810079GDDC

PATIENT
  Age: 57 Year
  Sex: Male

DRUGS (8)
  1. LANTUS [Suspect]
     Route: 058
     Dates: start: 20061220
  2. AUTOPEN INSULIN INJECTION PEN [Suspect]
  3. UNKNOWN DRUG [Concomitant]
     Dates: start: 20060101
  4. GEMFIBROZIL [Concomitant]
     Dates: start: 19990101
  5. LIPITOR [Concomitant]
     Dates: start: 20000101
  6. NORVASC                            /00972401/ [Concomitant]
     Route: 048
  7. ATENOLOL [Concomitant]
  8. COVERSYL PLUS [Concomitant]

REACTIONS (2)
  - CEREBROVASCULAR ACCIDENT [None]
  - WEIGHT DECREASED [None]
